FAERS Safety Report 10473162 (Version 1)
Quarter: 2014Q3

REPORT INFORMATION
  Report Type: Spontaneous
  Country: US (occurrence: US)
  Receive Date: 20140924
  Receipt Date: 20140924
  Transmission Date: 20150326
  Serious: No
  Sender: FDA-Public Use
  Company Number: US-SA-2014SA125263

PATIENT
  Age: 40 Year
  Sex: Female
  Weight: 63.9 kg

DRUGS (4)
  1. AUBAGIO [Suspect]
     Active Substance: TERIFLUNOMIDE
     Indication: MULTIPLE SCLEROSIS
     Route: 048
     Dates: start: 201404, end: 20140715
  2. SYNTHROID [Concomitant]
     Active Substance: LEVOTHYROXINE SODIUM
  3. GARLIC. [Concomitant]
     Active Substance: GARLIC
  4. ASPIRIN. [Concomitant]
     Active Substance: ASPIRIN

REACTIONS (6)
  - Anxiety [Not Recovered/Not Resolved]
  - Weight decreased [Recovered/Resolved]
  - Decreased appetite [Recovered/Resolved]
  - Hypertension [Not Recovered/Not Resolved]
  - Diarrhoea [Recovered/Resolved]
  - Toothache [Recovered/Resolved]

NARRATIVE: CASE EVENT DATE: 2014
